FAERS Safety Report 6291908-3 (Version None)
Quarter: 2009Q3

REPORT INFORMATION
  Report Type: 
  Country: None (occurrence: None)
  Receive Date: 20090730
  Receipt Date: 20090720
  Transmission Date: 20100115
  Serious: Yes (Death, Hospitalization)
  Sender: FDA-Public Use
  Company Number: FR-BAXTER-2009BH011874

PATIENT
  Age: 38 Year
  Sex: Female

DRUGS (7)
  1. ENDOXAN BAXTER [Suspect]
     Indication: B-CELL TYPE ACUTE LEUKAEMIA
     Route: 042
     Dates: start: 20090416, end: 20090416
  2. METHYLPREDNISOLONE [Suspect]
     Indication: B-CELL TYPE ACUTE LEUKAEMIA
     Route: 038
     Dates: start: 20090416, end: 20090416
  3. ARACYTINE [Suspect]
     Indication: B-CELL TYPE ACUTE LEUKAEMIA
     Route: 038
     Dates: start: 20090416, end: 20090416
  4. METHOTREXATE GENERIC [Suspect]
     Indication: B-CELL TYPE ACUTE LEUKAEMIA
     Route: 038
     Dates: start: 20090416, end: 20090416
  5. DAUNORUBICIN HCL [Suspect]
     Indication: B-CELL TYPE ACUTE LEUKAEMIA
     Route: 042
     Dates: start: 20090416, end: 20090416
  6. VINCRISTINE SULFATE GENERIC [Suspect]
     Indication: B-CELL TYPE ACUTE LEUKAEMIA
     Route: 042
     Dates: start: 20090416, end: 20090416
  7. PREDNISONE TAB [Concomitant]
     Indication: B-CELL TYPE ACUTE LEUKAEMIA
     Route: 065
     Dates: start: 20090408, end: 20090414

REACTIONS (7)
  - BRAIN DEATH [None]
  - BRAIN OEDEMA [None]
  - CARDIO-RESPIRATORY ARREST [None]
  - HAEMORRHAGE INTRACRANIAL [None]
  - MYDRIASIS [None]
  - RESPIRATORY ARREST [None]
  - VASCULITIS CEREBRAL [None]
